FAERS Safety Report 9981765 (Version 2)
Quarter: 2014Q1

REPORT INFORMATION
  Report Type: Report from Study
  Country: US (occurrence: US)
  Receive Date: 20140307
  Receipt Date: 20140307
  Transmission Date: 20141002
  Serious: No
  Sender: FDA-Public Use
  Company Number: US-ABBVIE-13P-163-1174585-00

PATIENT
  Age: 40 Year
  Sex: Female

DRUGS (11)
  1. HUMIRA [Suspect]
     Indication: RHEUMATOID ARTHRITIS
     Dates: start: 20131028
  2. WELLBUTRIN [Concomitant]
     Indication: PRODUCT USED FOR UNKNOWN INDICATION
     Dosage: EVERY MORNING
  3. XANAX [Concomitant]
     Indication: PANIC ATTACK
  4. GABAPENTIN [Concomitant]
     Indication: NEUROPATHY PERIPHERAL
     Dosage: 300 MG IN AM AND 600 MG IN PM
  5. MELOXICAM [Concomitant]
     Indication: RHEUMATOID ARTHRITIS
  6. FABB [Concomitant]
     Indication: VITAMIN SUPPLEMENTATION
  7. FABB [Concomitant]
     Indication: MINERAL SUPPLEMENTATION
  8. METHOTREXATE [Concomitant]
     Indication: RHEUMATOID ARTHRITIS
     Dosage: 2.5 MG 4 ON SAT AND SUNDAY EACH WEEK
  9. TRAMADOL [Concomitant]
     Indication: PAIN
     Dosage: 1-2 TABLETS EVERY 6 HOURS AS NEEDED
  10. HYDROCODONE/APAP [Concomitant]
     Indication: PAIN
     Dosage: 5/500 MG EVERY 4-6 HOURS
  11. IMITREX [Concomitant]
     Indication: MIGRAINE

REACTIONS (5)
  - Sneezing [Recovering/Resolving]
  - Nasal discharge discolouration [Recovering/Resolving]
  - Sinusitis [Recovering/Resolving]
  - Arthralgia [Not Recovered/Not Resolved]
  - Middle insomnia [Unknown]
